FAERS Safety Report 6175351-3 (Version None)
Quarter: 2009Q2

REPORT INFORMATION
  Report Type: 
  Country: None (occurrence: None)
  Receive Date: 20090430
  Receipt Date: 20090427
  Transmission Date: 20091009
  Serious: Yes (Hospitalization)
  Sender: FDA-Public Use
  Company Number: JP-ABBOTT-09P-087-0561416-00

PATIENT
  Sex: Female
  Weight: 45 kg

DRUGS (16)
  1. KLARICID [Suspect]
     Indication: MYCOBACTERIAL INFECTION
     Route: 048
     Dates: start: 20081017, end: 20090208
  2. KLARICID [Suspect]
     Indication: ABDOMINAL MASS
     Route: 048
     Dates: start: 20030301, end: 20081016
  3. KLARICID [Suspect]
  4. METHOTREXATE [Suspect]
     Indication: RHEUMATOID ARTHRITIS
     Dosage: 8MG WEEKLY
     Route: 048
     Dates: start: 20031210, end: 20090208
  5. PREDNISOLONE [Concomitant]
     Indication: RHEUMATOID ARTHRITIS
     Route: 048
     Dates: start: 20080530
  6. PREDNISOLONE [Concomitant]
     Route: 048
     Dates: start: 20080328, end: 20080329
  7. PREDNISOLONE [Concomitant]
     Route: 048
     Dates: end: 20080527
  8. FAMOTIDINE [Concomitant]
     Indication: GASTRITIS
     Route: 048
     Dates: start: 20040601
  9. ALFACALCIDOL [Concomitant]
     Indication: OSTEOPOROSIS
     Route: 048
     Dates: start: 20031111
  10. CALCIUM L-ASPARTATE [Concomitant]
     Indication: OSTEOPOROSIS
     Route: 048
     Dates: start: 20031111
  11. METHOTREXATE [Concomitant]
     Route: 048
     Dates: start: 20030617, end: 20031209
  12. VALSARTAN [Concomitant]
     Indication: HYPERTENSION
     Route: 048
     Dates: start: 20050127
  13. SODIUM RISEDRONATE HYDRATE [Concomitant]
     Indication: OSTEOPOROSIS
     Route: 048
     Dates: start: 20031210
  14. ACTONEL [Concomitant]
     Indication: OSTEOPOROSIS
     Route: 048
     Dates: start: 20071129, end: 20090205
  15. FLOMAX [Concomitant]
     Indication: NASOPHARYNGITIS
     Route: 048
     Dates: start: 20081002, end: 20081009
  16. NON-PYRINE COLD PREPARATION [Concomitant]
     Indication: NASOPHARYNGITIS
     Route: 048
     Dates: start: 20081002, end: 20081009

REACTIONS (8)
  - ABDOMINAL MASS [None]
  - ALOPECIA [None]
  - ANOREXIA [None]
  - DYSGEUSIA [None]
  - GENERAL PHYSICAL HEALTH DETERIORATION [None]
  - NAUSEA [None]
  - PANCYTOPENIA [None]
  - VOMITING [None]
